FAERS Safety Report 5242958-7 (Version None)
Quarter: 2007Q1

REPORT INFORMATION
  Report Type: 
  Country: None (occurrence: None)
  Receive Date: 20070215
  Receipt Date: 20070205
  Transmission Date: 20070707
  Serious: Yes (Other)
  Sender: FDA-Public Use
  Company Number: 235849

PATIENT
  Age: 86 Year
  Sex: Female

DRUGS (3)
  1. LUCENTIS [Suspect]
     Indication: DRUG USE FOR UNKNOWN INDICATION
     Dosage: INTRAVITREAL
     Dates: start: 20061115, end: 20061115
  2. ANTI HYPERTENSIVE MEDS (ANTI HYPERTENSIVE NOS) [Concomitant]
  3. THYROID MEDICATION (THYROID DRUG NOS) [Concomitant]

REACTIONS (6)
  - DIARRHOEA [None]
  - FALL [None]
  - MYOCARDIAL INFARCTION [None]
  - NAUSEA [None]
  - SPINAL FRACTURE [None]
  - VOMITING [None]
